FAERS Safety Report 10067169 (Version 1)
Quarter: 2014Q2

REPORT INFORMATION
  Report Type: Spontaneous
  Country: US (occurrence: None)
  Receive Date: 20140408
  Receipt Date: 20140408
  Transmission Date: 20141212
  Serious: Yes (Disabling)
  Sender: FDA-Public Use
  Company Number: None

PATIENT
  Age: 55 Year
  Sex: Male
  Weight: 104.33 kg

DRUGS (1)
  1. PRAVASTATIN [Suspect]
     Indication: BLOOD CHOLESTEROL INCREASED
     Dosage: 1 ONCE DAILY TAKEN BY MOUTH
     Route: 048
     Dates: start: 20140324, end: 20140331

REACTIONS (10)
  - Weight decreased [None]
  - Decreased appetite [None]
  - Loss of libido [None]
  - Muscle spasms [None]
  - Restlessness [None]
  - Asthenia [None]
  - Constipation [None]
  - Impaired work ability [None]
  - Blood glucose increased [None]
  - Drug ineffective [None]
